FAERS Safety Report 25611191 (Version 1)
Quarter: 2025Q3

REPORT INFORMATION
  Report Type: Spontaneous
  Country: US (occurrence: None)
  Receive Date: 20250725
  Receipt Date: 20250725
  Transmission Date: 20251021
  Serious: Yes (Other)
  Sender: FDA-CTU
  Company Number: None

PATIENT
  Age: 70 Year
  Sex: Female
  Weight: 75 kg

DRUGS (9)
  1. PACLITAXEL [Suspect]
     Active Substance: PACLITAXEL
     Route: 042
  2. PACLITAXEL [Suspect]
     Active Substance: PACLITAXEL
     Route: 042
  3. DEXAMETHASONE [Concomitant]
     Active Substance: DEXAMETHASONE
     Dates: start: 20250527, end: 20250528
  4. DIPHENHYDRAMINE [Concomitant]
     Active Substance: DIPHENHYDRAMINE
     Dates: start: 20250527, end: 20250528
  5. FAMOTIDINE [Concomitant]
     Active Substance: FAMOTIDINE
     Dates: start: 20250527, end: 20250528
  6. EMEND [Concomitant]
     Active Substance: APREPITANT
     Dates: start: 20250527, end: 20250528
  7. ZOFRAN [Concomitant]
     Active Substance: ONDANSETRON HYDROCHLORIDE
     Dates: start: 20250527, end: 20250528
  8. SODIUM CHLORIDE [Concomitant]
     Active Substance: SODIUM CHLORIDE
     Dates: start: 20250528, end: 20250528
  9. BEVACIZUMAB [Concomitant]
     Active Substance: BEVACIZUMAB
     Dates: start: 20250527, end: 20250527

REACTIONS (10)
  - Infusion related reaction [None]
  - Malaise [None]
  - Unresponsive to stimuli [None]
  - Snoring [None]
  - Respiration abnormal [None]
  - Nausea [None]
  - Back pain [None]
  - Disorientation [None]
  - Flushing [None]
  - Therapy cessation [None]

NARRATIVE: CASE EVENT DATE: 20250528
